FAERS Safety Report 11972127 (Version 5)
Quarter: 2019Q1

REPORT INFORMATION
  Report Type: Report from Study
  Country: BR (occurrence: BR)
  Receive Date: 20160128
  Receipt Date: 20190109
  Transmission Date: 20190417
  Serious: Yes (Other)
  Sender: FDA-Public Use
  Company Number: PHHY2015BR109367

PATIENT
  Age: 61 Year
  Sex: Female
  Weight: 78 kg

DRUGS (15)
  1. XOLAIR [Suspect]
     Active Substance: OMALIZUMAB
     Indication: ASTHMA
     Dosage: 3 DF (450 MG), UNK
     Route: 058
     Dates: start: 20060211
  2. XOLAIR [Suspect]
     Active Substance: OMALIZUMAB
     Dosage: UNK
     Route: 058
     Dates: start: 201704
  3. XOLAIR [Suspect]
     Active Substance: OMALIZUMAB
     Dosage: 225 MG, TWO AMPOULES OF 150MG PLUS HALF OF ANOTHER AMPOULE
     Route: 058
     Dates: start: 201704
  4. AEROLIN [Suspect]
     Active Substance: ALBUTEROL
     Indication: PRODUCT USED FOR UNKNOWN INDICATION
     Dosage: UNK UNK, BID
     Route: 065
  5. AEROLIN [Suspect]
     Active Substance: ALBUTEROL
     Dosage: UNK
     Route: 065
  6. NORIPURUM [Suspect]
     Active Substance: IRON POLYMALTOSE
     Indication: IRON DEFICIENCY ANAEMIA
     Dosage: (ONCE IN A WEEK)
     Route: 042
  7. XOLAIR [Suspect]
     Active Substance: OMALIZUMAB
     Dosage: UNK, EVERY 1 MONTH
     Route: 058
     Dates: start: 20181217
  8. FORASEQ [Suspect]
     Active Substance: BUDESONIDE\FORMOTEROL FUMARATE
     Indication: ASTHMA
     Dosage: 1 CAPSULE OF EACH TREATMENT, BID
     Route: 055
  9. XOLAIR [Suspect]
     Active Substance: OMALIZUMAB
     Dosage: 225 MG, TWO AMPOULES OF 150MG PLUS HALF OF ANOTHER AMPOULE
     Route: 058
     Dates: start: 2015
  10. BUDESONIDE. [Concomitant]
     Active Substance: BUDESONIDE
     Indication: PRODUCT USED FOR UNKNOWN INDICATION
     Dosage: UNK
     Route: 065
  11. XOLAIR [Suspect]
     Active Substance: OMALIZUMAB
     Dosage: 3 DF, BIW (3 AMPOULES, EACH ONE OF 150 MG, AMOUNTING 6 AMPOULES A MONTH)
     Route: 058
     Dates: start: 201706
  12. MIFLONIDE [Suspect]
     Active Substance: BUDESONIDE
     Indication: ASTHMA
     Dosage: UNK
     Route: 065
  13. IRON [Suspect]
     Active Substance: IRON
     Indication: PRODUCT USED FOR UNKNOWN INDICATION
     Route: 065
  14. XOLAIR [Suspect]
     Active Substance: OMALIZUMAB
     Dosage: UNK
     Route: 058
     Dates: start: 20170728
  15. XOLAIR [Suspect]
     Active Substance: OMALIZUMAB
     Dosage: 450 MG, QMO
     Route: 058
     Dates: start: 20180914

REACTIONS (27)
  - Wrist fracture [Not Recovered/Not Resolved]
  - Arthralgia [Not Recovered/Not Resolved]
  - Depressed mood [Unknown]
  - Nasal septum deviation [Not Recovered/Not Resolved]
  - Wheezing [Unknown]
  - Fall [Unknown]
  - Mental disorder [Unknown]
  - Gait disturbance [Unknown]
  - Hiatus hernia [Not Recovered/Not Resolved]
  - Asthma [Not Recovered/Not Resolved]
  - Iron deficiency anaemia [Not Recovered/Not Resolved]
  - Suffocation feeling [Not Recovered/Not Resolved]
  - Osteoarthritis [Unknown]
  - Visual impairment [Not Recovered/Not Resolved]
  - Goitre [Not Recovered/Not Resolved]
  - Drug intolerance [Not Recovered/Not Resolved]
  - Dependence [Unknown]
  - Depression [Not Recovered/Not Resolved]
  - Movement disorder [Recovering/Resolving]
  - Fatigue [Not Recovered/Not Resolved]
  - Restless legs syndrome [Not Recovered/Not Resolved]
  - Dyspnoea [Unknown]
  - Concomitant disease aggravated [Not Recovered/Not Resolved]
  - Asthenia [Not Recovered/Not Resolved]
  - Asthmatic crisis [Not Recovered/Not Resolved]
  - Disturbance in attention [Unknown]
  - Haemoglobin decreased [Recovering/Resolving]

NARRATIVE: CASE EVENT DATE: 20181208
